FAERS Safety Report 19809297 (Version 1)
Quarter: 2021Q3

REPORT INFORMATION
  Report Type: Report from Study
  Country: BR (occurrence: BR)
  Receive Date: 20210908
  Receipt Date: 20210908
  Transmission Date: 20211014
  Serious: Yes (Congenital Anomaly)
  Sender: FDA-Public Use
  Company Number: BR-CELLTRION-2021-BR-000101

PATIENT
  Age: 41 Year
  Sex: Female

DRUGS (1)
  1. LAMIVUDINE?TENOFOVIR DISOPROXIL FUMARATE [Suspect]
     Active Substance: LAMIVUDINE\TENOFOVIR DISOPROXIL FUMARATE
     Indication: HIV INFECTION
     Dosage: 600 MG/DAY
     Route: 048
     Dates: start: 20180215

REACTIONS (2)
  - Exposure during pregnancy [Unknown]
  - Ultrasound foetal abnormal [Unknown]

NARRATIVE: CASE EVENT DATE: 20181211
